FAERS Safety Report 8361237-2 (Version None)
Quarter: 2012Q2

REPORT INFORMATION
  Report Type: 
  Country: None (occurrence: None)
  Receive Date: 20120515
  Receipt Date: 20110726
  Transmission Date: 20120825
  Serious: No
  Sender: FDA-Public Use
  Company Number: US-ALEXION-A201101129

PATIENT
  Sex: Female

DRUGS (6)
  1. PREDNISONE TAB [Concomitant]
     Dosage: UNK
  2. HEPARIN [Concomitant]
     Dosage: UNK
  3. LOVENOX [Concomitant]
  4. SOLIRIS [Suspect]
     Indication: PAROXYSMAL NOCTURNAL HAEMOGLOBINURIA
     Dosage: UNK
     Route: 042
  5. MULTI-VITAMINS [Concomitant]
     Dosage: UNK
  6. IRON [Concomitant]
     Dosage: UNK

REACTIONS (3)
  - HAEMOGLOBIN DECREASED [None]
  - PREGNANCY [None]
  - FLUID IMBALANCE [None]
